FAERS Safety Report 7941096-X (Version None)
Quarter: 2011Q4

REPORT INFORMATION
  Report Type: 
  Country: None (occurrence: None)
  Receive Date: 20111114
  Receipt Date: 20110707
  Transmission Date: 20120403
  Serious: Yes (Death)
  Sender: FDA-Public Use
  Company Number: 2011S1000475

PATIENT
  Age: 75 Year
  Sex: Male
  Weight: 81 kg

DRUGS (1)
  1. CUBICIN [Suspect]
     Indication: OSTEOMYELITIS
     Dosage: IV
     Route: 042
     Dates: start: 20100625, end: 20100715

REACTIONS (12)
  - PULMONARY TOXICITY [None]
  - EOSINOPHILIA [None]
  - ATRIAL FIBRILLATION [None]
  - RESPIRATORY FAILURE [None]
  - PULMONARY EMBOLISM [None]
  - CONDITION AGGRAVATED [None]
  - DELIRIUM [None]
  - LUNG INFILTRATION [None]
  - BRONCHIECTASIS [None]
  - DEEP VEIN THROMBOSIS [None]
  - HYPERSENSITIVITY [None]
  - EMBOLISM VENOUS [None]
